FAERS Safety Report 22223765 (Version 1)
Quarter: 2023Q2

REPORT INFORMATION
  Report Type: Spontaneous
  Country: US (occurrence: None)
  Receive Date: 20230417
  Receipt Date: 20230417
  Transmission Date: 20230721
  Serious: Yes (Other)
  Sender: FDA-Public Use
  Company Number: None

PATIENT
  Sex: Female

DRUGS (1)
  1. METHYLPHENIDATE HYDROCHLORIDE [Suspect]
     Active Substance: METHYLPHENIDATE HYDROCHLORIDE

REACTIONS (13)
  - Rash [None]
  - Pruritus [None]
  - Depressed mood [None]
  - Abdominal distension [None]
  - Diarrhoea [None]
  - Lip swelling [None]
  - Pharyngeal swelling [None]
  - Rhinorrhoea [None]
  - Allergic reaction to excipient [None]
  - Product label issue [None]
  - Illness [None]
  - Product substitution issue [None]
  - Product availability issue [None]

NARRATIVE: CASE EVENT DATE: 20230417
